FAERS Safety Report 6247844-1 (Version None)
Quarter: 2009Q2

REPORT INFORMATION
  Report Type: 
  Country: None (occurrence: None)
  Receive Date: 20090626
  Receipt Date: 20090624
  Transmission Date: 20091009
  Serious: Yes (Other)
  Sender: FDA-Public Use
  Company Number: US-AMGEN-KDL342420

PATIENT
  Sex: Female
  Weight: 39.5 kg

DRUGS (27)
  1. EPOGEN [Suspect]
     Indication: DIALYSIS
     Route: 058
     Dates: start: 20070101
  2. CELLCEPT [Suspect]
     Dates: start: 20080506
  3. NORVASC [Concomitant]
     Dates: start: 20070108
  4. ALESSE [Concomitant]
  5. UNSPECIFIED CONTRACEPTIVE [Concomitant]
  6. LISINOPRIL [Concomitant]
     Dates: start: 20070208
  7. METOPROLOL SUCCINATE [Concomitant]
     Dates: start: 20070108
  8. MIRAPEX [Concomitant]
     Dates: start: 20080715
  9. NEPHROCAPS [Concomitant]
     Dates: start: 20070108
  10. PHOSLO [Concomitant]
     Dates: start: 20070101
  11. BACTROBAN [Concomitant]
     Dates: start: 20070524
  12. CEFAZOLIN [Concomitant]
     Dates: start: 20070823
  13. DIFFERIN (GALDERMA LABS) [Concomitant]
     Dates: start: 20071218
  14. ERGOCALCIFEROL [Concomitant]
     Dates: start: 20090122
  15. NEPHRO-VITE [Concomitant]
     Route: 048
     Dates: start: 20070430
  16. CHOLECALCIFEROL [Concomitant]
     Dates: start: 20080813
  17. VITAMIN B-12 [Concomitant]
     Dates: start: 20081111
  18. LUNESTA [Concomitant]
     Route: 048
     Dates: start: 20081217
  19. OMEPRAZOLE [Concomitant]
     Dates: start: 20071219
  20. RANITIDINE [Concomitant]
     Dates: start: 20080328
  21. RENAGEL [Concomitant]
     Dates: start: 20090122
  22. TOBRAMYCIN [Concomitant]
     Dates: start: 20070823
  23. PRILOSEC [Concomitant]
     Route: 048
     Dates: start: 20071219
  24. GENTAMICIN [Concomitant]
     Route: 061
     Dates: start: 20090220
  25. VENOFER [Concomitant]
     Route: 042
  26. LEVOCARNITINE [Concomitant]
     Route: 042
  27. KAYEXALATE [Concomitant]
     Dates: start: 20090320, end: 20090321

REACTIONS (5)
  - BONE MARROW FAILURE [None]
  - NORMOCHROMIC NORMOCYTIC ANAEMIA [None]
  - SCOTOMA [None]
  - THYROID NEOPLASM [None]
  - VASCULITIS [None]
